FAERS Safety Report 9109800 (Version 2)
Quarter: 2014Q3

REPORT INFORMATION
  Report Type: Spontaneous
  Country: US (occurrence: US)
  Receive Date: 20130222
  Receipt Date: 20140702
  Transmission Date: 20150326
  Serious: No
  Sender: FDA-Public Use
  Company Number: US-PFIZER INC-2013064692

PATIENT
  Age: 50 Year
  Sex: Female
  Weight: 76.6 kg

DRUGS (5)
  1. LEVOXYL [Suspect]
     Active Substance: LEVOTHYROXINE SODIUM
     Dosage: 118.5 UG, (HALF TABLET OF 125 MCG AND HALF TABLET OF 112 MCG) DAILY
     Route: 048
     Dates: start: 201402
  2. LEVOXYL [Suspect]
     Active Substance: LEVOTHYROXINE SODIUM
     Indication: HYPOTHYROIDISM
     Dosage: 118.5 UG (HALF TABLET OF 125UG + HALF TABLET OF 112UG), 1X/DAY
     Route: 048
     Dates: start: 2006
  3. LEVOXYL [Suspect]
     Active Substance: LEVOTHYROXINE SODIUM
     Dosage: 112 UG, DAILY
     Route: 048
  4. THYROXINE [Concomitant]
     Active Substance: LEVOTHYROXINE
     Dosage: UNK
  5. CYTOMEL [Concomitant]
     Active Substance: LIOTHYRONINE SODIUM
     Indication: HYPOTHYROIDISM
     Dosage: 2.5 UG, DAILY

REACTIONS (6)
  - Rash papular [Unknown]
  - Psychomotor hyperactivity [Unknown]
  - Drug intolerance [Recovered/Resolved]
  - Feeling abnormal [Unknown]
  - Thyroxine increased [Recovered/Resolved]
  - Swelling [Recovered/Resolved]

NARRATIVE: CASE EVENT DATE: 2013
